FAERS Safety Report 12239032 (Version 2)
Quarter: 2016Q2

REPORT INFORMATION
  Report Type: Spontaneous
  Country: ES (occurrence: ES)
  Receive Date: 20160405
  Receipt Date: 20160415
  Transmission Date: 20160815
  Serious: Yes (Other)
  Sender: FDA-Public Use
  Company Number: ES-SA-2016SA064435

PATIENT
  Age: 77 Year
  Sex: Male

DRUGS (2)
  1. DOCETAXEL. [Suspect]
     Active Substance: DOCETAXEL
     Indication: PROSTATE CANCER
     Dosage: CYCLICAL
     Route: 065
     Dates: start: 201108
  2. DOCETAXEL. [Suspect]
     Active Substance: DOCETAXEL
     Indication: PROSTATE CANCER
     Route: 065

REACTIONS (12)
  - Pain in extremity [Recovering/Resolving]
  - Fixed drug eruption [Unknown]
  - Palmar-plantar erythrodysaesthesia syndrome [Recovering/Resolving]
  - Peripheral swelling [Recovering/Resolving]
  - Paraesthesia [Recovering/Resolving]
  - Activities of daily living impaired [Unknown]
  - Type IV hypersensitivity reaction [Recovering/Resolving]
  - Epidermal necrosis [Recovering/Resolving]
  - Onycholysis [Recovering/Resolving]
  - Rash maculo-papular [Recovering/Resolving]
  - Lichenoid keratosis [Unknown]
  - Rash [Unknown]
